FAERS Safety Report 5305695-6 (Version None)
Quarter: 2007Q2

REPORT INFORMATION
  Report Type: 
  Country: None (occurrence: None)
  Receive Date: 20070423
  Receipt Date: 20070423
  Transmission Date: 20071010
  Serious: Yes (Hospitalization)
  Sender: FDA-Public Use
  Company Number: None

PATIENT
  Age: 53 Year
  Sex: Female

DRUGS (1)
  1. BUPROPION HCL [Suspect]
     Dosage: 150 MG BID PO
     Route: 048

REACTIONS (3)
  - IMPAIRED HEALING [None]
  - RASH [None]
  - URTICARIA [None]
